FAERS Safety Report 9547495 (Version 1)
Quarter: 2013Q3

REPORT INFORMATION
  Report Type: Spontaneous
  Country: ES (occurrence: ES)
  Receive Date: 20130924
  Receipt Date: 20130924
  Transmission Date: 20140515
  Serious: Yes (Death, Hospitalization)
  Sender: FDA-Public Use
  Company Number: ES-SANOFI-AVENTIS-2013SA092934

PATIENT
  Age: 92 Year
  Sex: Female

DRUGS (7)
  1. CLEXANE [Suspect]
     Indication: THROMBOSIS PROPHYLAXIS
     Dosage: 40MG
     Route: 058
     Dates: start: 20121204
  2. ESCITALOPRAM [Interacting]
     Indication: DEPRESSION
     Dosage: 10MG EN DESAYUNO
     Route: 048
     Dates: start: 20121204, end: 20121207
  3. DEXKETOPROFEN [Interacting]
     Indication: PAIN
     Dosage: 50MG/8H
     Route: 042
     Dates: start: 20121204, end: 20121205
  4. HALOPERIDOL [Concomitant]
     Indication: AGITATION
     Dosage: 5MG/8H
     Route: 042
     Dates: start: 20121204, end: 20121205
  5. RISPERIDONE [Concomitant]
     Indication: AGITATION
     Dosage: 1MG EN CENA
     Route: 048
     Dates: start: 20121204, end: 20121207
  6. OMEPRAZOLE [Concomitant]
     Indication: PROPHYLAXIS
     Dosage: 20MG
     Route: 048
     Dates: start: 20121204
  7. OXYCODONE [Concomitant]
     Indication: PAIN
     Dosage: 5MG/8H
     Route: 048
     Dates: start: 20121205, end: 20121207

REACTIONS (3)
  - Coma [Fatal]
  - Anuria [Fatal]
  - Haemorrhagic anaemia [Recovering/Resolving]
